FAERS Safety Report 7347312-X (Version None)
Quarter: 2011Q1

REPORT INFORMATION
  Report Type: 
  Country: None (occurrence: None)
  Receive Date: 20110311
  Receipt Date: 20110310
  Transmission Date: 20110831
  Serious: Yes (Other)
  Sender: FDA-Public Use
  Company Number: DE-ROCHE-744931

PATIENT
  Sex: Female
  Weight: 55 kg

DRUGS (6)
  1. PREDNISONE TAB [Concomitant]
     Route: 048
     Dates: start: 20030101
  2. TOCILIZUMAB [Suspect]
     Route: 042
     Dates: start: 20100924, end: 20100924
  3. CALCIUM [Concomitant]
  4. ARAVA [Concomitant]
     Dates: start: 20090401
  5. VITAMIN D [Concomitant]
  6. QUENSYL [Concomitant]
     Route: 048
     Dates: start: 20081001

REACTIONS (4)
  - SKIN BURNING SENSATION [None]
  - PRURITUS [None]
  - RASH PUSTULAR [None]
  - OEDEMA [None]
